FAERS Safety Report 20630426 (Version 1)
Quarter: 2022Q1

REPORT INFORMATION
  Report Type: Spontaneous
  Country: US (occurrence: US)
  Receive Date: 20220324
  Receipt Date: 20220324
  Transmission Date: 20220423
  Serious: Yes (Hospitalization, Other)
  Sender: FDA-Public Use
  Company Number: US-CELLTRION INC.-2022US003334

PATIENT

DRUGS (1)
  1. INFLIXIMAB [Suspect]
     Active Substance: INFLIXIMAB
     Indication: Proctitis
     Dosage: TWO DOSES OF INFLIXIMAB UNTIL OVER A TWO-WEEK PERIOD

REACTIONS (6)
  - Cough [Unknown]
  - Drug-induced liver injury [Unknown]
  - Cytomegalovirus colitis [Unknown]
  - Vanishing bile duct syndrome [Unknown]
  - Diarrhoea haemorrhagic [Unknown]
  - Off label use [Unknown]
